FAERS Safety Report 7884296-X (Version None)
Quarter: 2011Q4

REPORT INFORMATION
  Report Type: 
  Country: None (occurrence: None)
  Receive Date: 20111102
  Receipt Date: 20111031
  Transmission Date: 20120403
  Serious: Yes (Other)
  Sender: FDA-Public Use
  Company Number: US-BRISTOL-MYERS SQUIBB COMPANY-16205619

PATIENT
  Age: 63 Year
  Sex: Male
  Weight: 79 kg

DRUGS (16)
  1. ABILIFY [Suspect]
     Indication: PARANOIA
     Dosage: STARTED 6 YRS AGO
     Route: 048
  2. GLYBURIDE [Concomitant]
  3. LEXAPRO [Concomitant]
  4. KLONOPIN [Concomitant]
  5. LAMOTRIGINE [Concomitant]
  6. HYDROCODONE BITARTRATE [Concomitant]
  7. DONEPEZIL HCL [Concomitant]
  8. METFORMIN HCL [Concomitant]
  9. VESICARE [Concomitant]
  10. TESTOSTERONE [Concomitant]
  11. METOPROLOL TARTRATE [Concomitant]
  12. DONEPEZIL HCL [Concomitant]
  13. MENTAX [Concomitant]
  14. ABILIFY [Suspect]
     Indication: DEPRESSION
     Dosage: STARTED 6 YRS AGO
     Route: 048
  15. SIMVASTATIN [Concomitant]
  16. MENTAX [Concomitant]

REACTIONS (1)
  - DEMENTIA [None]
